FAERS Safety Report 10736174 (Version 1)
Quarter: 2015Q1

REPORT INFORMATION
  Report Type: Spontaneous
  Country: FR (occurrence: None)
  Receive Date: 20150121
  Receipt Date: 20150121
  Transmission Date: 20150721
  Serious: Yes (Hospitalization)
  Sender: FDA-Public Use
  Company Number: FR2015GSK001843

PATIENT
  Age: 87 Year
  Sex: Female

DRUGS (3)
  1. DEROXAT [Suspect]
     Active Substance: PAROXETINE HYDROCHLORIDE
     Route: 048
     Dates: start: 201406, end: 20141006
  2. CANDESARTAN CILEXETIL. [Suspect]
     Active Substance: CANDESARTAN CILEXETIL
     Route: 048
  3. PANTOPRAZOLE [Suspect]
     Active Substance: PANTOPRAZOLE SODIUM
     Route: 048
     Dates: end: 20141006

REACTIONS (5)
  - Lung disorder [None]
  - Inappropriate antidiuretic hormone secretion [None]
  - Fall [None]
  - Drug interaction [None]
  - Hyponatraemia [None]

NARRATIVE: CASE EVENT DATE: 20141006
